FAERS Safety Report 10053468 (Version 17)
Quarter: 2016Q3

REPORT INFORMATION
  Report Type: Report from Study
  Country: CA (occurrence: CA)
  Receive Date: 20140402
  Receipt Date: 20160908
  Transmission Date: 20161108
  Serious: Yes (Other)
  Sender: FDA-Public Use
  Company Number: PHHY2014CA030402

PATIENT
  Age: 54 Year
  Sex: Female

DRUGS (6)
  1. BUSCOPAN [Concomitant]
     Active Substance: BUTYLSCOPOLAMINE BROMIDE
     Indication: PRODUCT USED FOR UNKNOWN INDICATION
     Dosage: 10 MG, PRN (APPROXIMATELY 6 TABLETS OVER 24 HOUR PERIOD)
     Route: 048
  2. SANDOSTATIN LAR DEPOT [Suspect]
     Active Substance: OCTREOTIDE ACETATE
     Dosage: 30 MG, EVERY 3 WEEKS
     Route: 030
  3. VIOKASE [Concomitant]
     Active Substance: PANCRELIPASE
     Indication: DYSPEPSIA
     Dosage: 1 DF, TID (WITH MEALS)
     Route: 048
     Dates: start: 20140304
  4. SANDOSTATIN LAR DEPOT [Suspect]
     Active Substance: OCTREOTIDE ACETATE
     Indication: PANCREATIC NEUROENDOCRINE TUMOUR
     Dosage: 30 MG, QMO
     Route: 030
     Dates: start: 20140108
  5. SANDOSTATIN LAR DEPOT [Suspect]
     Active Substance: OCTREOTIDE ACETATE
     Dosage: 30 MG, BIW (EVERY 2 WEEKS)
     Route: 030
     Dates: end: 2016
  6. SPIRONOLACTONE. [Concomitant]
     Active Substance: SPIRONOLACTONE
     Indication: PRODUCT USED FOR UNKNOWN INDICATION
     Dosage: 50 MG, QD
     Route: 048

REACTIONS (18)
  - Hot flush [Unknown]
  - Headache [Unknown]
  - Needle issue [Unknown]
  - Inappropriate schedule of drug administration [Unknown]
  - Urinary tract infection [Recovered/Resolved]
  - Pancreatic disorder [Unknown]
  - Diarrhoea [Recovering/Resolving]
  - Pancreatic enzymes decreased [Unknown]
  - Blood pressure increased [Unknown]
  - Influenza like illness [Recovered/Resolved]
  - Nausea [Unknown]
  - Neoplasm progression [Recovering/Resolving]
  - Pollakiuria [Unknown]
  - Injection site haemorrhage [Recovered/Resolved]
  - Haematuria [Unknown]
  - Vomiting [Recovering/Resolving]
  - Malignant neoplasm progression [Recovering/Resolving]
  - Injection site pain [Unknown]

NARRATIVE: CASE EVENT DATE: 2014
